FAERS Safety Report 25978645 (Version 2)
Quarter: 2025Q4

REPORT INFORMATION
  Report Type: Spontaneous
  Country: EU (occurrence: EU)
  Receive Date: 20251030
  Receipt Date: 20251118
  Transmission Date: 20260117
  Serious: Yes (Death, Life-Threatening, Hospitalization)
  Sender: TEVA
  Company Number: EU-TEVA-VS-3386254

PATIENT
  Age: 60 Year
  Sex: Male

DRUGS (8)
  1. LEVOFLOXACIN [Suspect]
     Active Substance: LEVOFLOXACIN
     Indication: Antibiotic therapy
     Route: 065
  2. IBRUTINIB [Suspect]
     Active Substance: IBRUTINIB
     Indication: Hairy cell leukaemia
     Route: 065
  3. CLADRIBINE [Suspect]
     Active Substance: CLADRIBINE
     Indication: Hairy cell leukaemia
     Route: 065
  4. SULFAMETHOXAZOLE\TRIMETHOPRIM [Suspect]
     Active Substance: SULFAMETHOXAZOLE\TRIMETHOPRIM
     Indication: Antibiotic therapy
     Route: 042
  5. SPIRAMYCIN [Suspect]
     Active Substance: SPIRAMYCIN
     Indication: Antibiotic therapy
     Dosage: DOSE WAS DOUBLED
     Route: 065
  6. SPIRAMYCIN [Suspect]
     Active Substance: SPIRAMYCIN
     Indication: Antibiotic therapy
     Route: 065
  7. AMOXICILLIN [Suspect]
     Active Substance: AMOXICILLIN
     Indication: Antibiotic therapy
     Route: 065
  8. CEFEPIME [Suspect]
     Active Substance: CEFEPIME HYDROCHLORIDE
     Indication: Antibiotic therapy
     Route: 065

REACTIONS (19)
  - Pneumonia legionella [Fatal]
  - Septic shock [Unknown]
  - Drug ineffective [Fatal]
  - Thrombocytopenia [Unknown]
  - Hypoperfusion [Unknown]
  - Hypercapnia [Unknown]
  - Hepatic cytolysis [Unknown]
  - Acidosis [Unknown]
  - Hypoxia [Unknown]
  - Inflammatory marker increased [Unknown]
  - Anuria [Unknown]
  - Leukopenia [Unknown]
  - Hyperlactacidaemia [Unknown]
  - Acute kidney injury [Unknown]
  - Hypotension [Unknown]
  - Acute respiratory failure [Unknown]
  - Multiple organ dysfunction syndrome [Fatal]
  - Cholestasis [Unknown]
  - Hepatic failure [Unknown]
